FAERS Safety Report 18900766 (Version 4)
Quarter: 2021Q4

REPORT INFORMATION
  Report Type: Spontaneous
  Country: US (occurrence: US)
  Receive Date: 20210216
  Receipt Date: 20211220
  Transmission Date: 20220303
  Serious: No
  Sender: FDA-Public Use
  Company Number: US-SA-SAC20210212000367

PATIENT
  Sex: Female

DRUGS (1)
  1. AUBAGIO [Suspect]
     Active Substance: TERIFLUNOMIDE
     Indication: Multiple sclerosis
     Dosage: 14 MG, QD
     Route: 048
     Dates: start: 20190131

REACTIONS (6)
  - Sneezing [Unknown]
  - Cough [Unknown]
  - Rhinorrhoea [Unknown]
  - Sinus congestion [Unknown]
  - Chest discomfort [Unknown]
  - Wheezing [Unknown]
